FAERS Safety Report 7903284-8 (Version None)
Quarter: 2011Q4

REPORT INFORMATION
  Report Type: 
  Country: None (occurrence: None)
  Receive Date: 20111107
  Receipt Date: 20111024
  Transmission Date: 20120403
  Serious: Yes (Hospitalization, Other)
  Sender: FDA-Public Use
  Company Number: 2011FR0320

PATIENT
  Age: 10 Year
  Sex: Female

DRUGS (2)
  1. INDOMETHACIN [Concomitant]
  2. KINERET [Suspect]
     Indication: JUVENILE ARTHRITIS
     Dosage: 100 MG (200 MG, 1 IN 1 D) INJECTION
     Dates: start: 20081201

REACTIONS (4)
  - BACTERAEMIA [None]
  - RENAL TUBULAR NECROSIS [None]
  - RENAL FAILURE ACUTE [None]
  - SALMONELLA BACTERAEMIA [None]
